FAERS Safety Report 10032028 (Version 2)
Quarter: 2014Q2

REPORT INFORMATION
  Report Type: Spontaneous
  Country: JP (occurrence: JP)
  Receive Date: 20140324
  Receipt Date: 20140429
  Transmission Date: 20141212
  Serious: Yes (Hospitalization, Other)
  Sender: FDA-Public Use
  Company Number: JP-SA-2014SA033730

PATIENT
  Age: 19 Year
  Sex: Male
  Weight: 46.4 kg

DRUGS (17)
  1. FLUDARA [Suspect]
     Indication: HISTIOCYTOSIS HAEMATOPHAGIC
     Route: 065
     Dates: start: 20130615, end: 20130619
  2. THYMOGLOBULINE [Suspect]
     Indication: BONE MARROW CONDITIONING REGIMEN
     Route: 042
     Dates: start: 20130613, end: 20130614
  3. ALKERAN [Suspect]
     Indication: HISTIOCYTOSIS HAEMATOPHAGIC
     Route: 065
     Dates: start: 20130618, end: 20130619
  4. PROGRAF [Suspect]
     Indication: PROPHYLAXIS AGAINST GRAFT VERSUS HOST DISEASE
     Route: 065
     Dates: start: 20130620, end: 20140106
  5. METHOTREXATE [Suspect]
     Indication: PROPHYLAXIS AGAINST GRAFT VERSUS HOST DISEASE
     Route: 065
     Dates: start: 20130622, end: 20130702
  6. SOL-MELCORT [Suspect]
     Indication: ACUTE GRAFT VERSUS HOST DISEASE
     Route: 065
     Dates: start: 20130709, end: 20130718
  7. MEDROL [Suspect]
     Indication: ACUTE GRAFT VERSUS HOST DISEASE
     Route: 065
     Dates: start: 20130719, end: 20130730
  8. DEXART [Concomitant]
     Indication: HISTIOCYTOSIS HAEMATOPHAGIC
     Dates: start: 20130613, end: 20130621
  9. SOLU-CORTEF [Concomitant]
     Indication: PROPHYLAXIS
     Dates: start: 20130613, end: 20130614
  10. POLARAMINE [Concomitant]
     Indication: PROPHYLAXIS
     Dates: start: 20130613, end: 20130614
  11. VICCLOX [Concomitant]
     Indication: ANTIVIRAL PROPHYLAXIS
     Dates: start: 20130618, end: 20130705
  12. BENAMBAX [Concomitant]
     Indication: ANTIFUNGAL PROPHYLAXIS
     Dates: start: 20130620, end: 20130816
  13. GRANISETRON [Concomitant]
     Indication: PROPHYLAXIS OF NAUSEA AND VOMITING
     Dates: start: 20130615, end: 20130619
  14. HEPARIN ^NOVO^ [Concomitant]
     Indication: PROPHYLAXIS
     Dates: start: 20130613, end: 20130720
  15. ITRIZOLE [Concomitant]
     Indication: ANTIFUNGAL PROPHYLAXIS
     Dates: start: 20130613, end: 20130924
  16. POLAPREZINC [Concomitant]
     Indication: CHRONIC GASTRITIS
     Dates: start: 20130613, end: 20131105
  17. EMEND [Concomitant]
     Indication: PROPHYLAXIS OF NAUSEA AND VOMITING
     Dates: start: 20130618, end: 20130619

REACTIONS (5)
  - Febrile neutropenia [Recovered/Resolved]
  - Hypogammaglobulinaemia [Recovered/Resolved]
  - Cytomegalovirus infection [Recovered/Resolved]
  - Neutropenia [Recovered/Resolved]
  - Diarrhoea [Recovered/Resolved]
